FAERS Safety Report 10711006 (Version 2)
Quarter: 2015Q1

REPORT INFORMATION
  Report Type: Report from Study
  Country: CA (occurrence: CA)
  Receive Date: 20150114
  Receipt Date: 20150212
  Transmission Date: 20150721
  Serious: Yes (Hospitalization)
  Sender: FDA-Public Use
  Company Number: CA-JNJFOC-20150104823

PATIENT
  Sex: Female
  Weight: 79.38 kg

DRUGS (1)
  1. STELARA [Suspect]
     Active Substance: USTEKINUMAB
     Indication: PSORIASIS
     Route: 058
     Dates: start: 20140916

REACTIONS (3)
  - Cholelithiasis [Unknown]
  - Pharyngitis streptococcal [Unknown]
  - Pancreatitis [Recovering/Resolving]
